FAERS Safety Report 5750144-7 (Version None)
Quarter: 2008Q2

REPORT INFORMATION
  Report Type: 
  Country: None (occurrence: None)
  Receive Date: 20080522
  Receipt Date: 20080522
  Transmission Date: 20081010
  Serious: Yes (Other)
  Sender: FDA-Public Use
  Company Number: None

PATIENT
  Age: 6 Year
  Sex: Male
  Weight: 19.0511 kg

DRUGS (2)
  1. MIRTAZAPINE [Suspect]
     Indication: DEPRESSION
     Dosage: 1/2 PILL NIGHTLY PO
     Route: 048
     Dates: start: 20071201, end: 20080521
  2. MIRTAZAPINE [Suspect]
     Indication: INSOMNIA
     Dosage: 1/2 PILL NIGHTLY PO
     Route: 048
     Dates: start: 20071201, end: 20080521

REACTIONS (4)
  - FEAR [None]
  - HALLUCINATION, VISUAL [None]
  - MIDDLE INSOMNIA [None]
  - SCREAMING [None]
